FAERS Safety Report 21330251 (Version 2)
Quarter: 2022Q4

REPORT INFORMATION
  Report Type: Spontaneous
  Country: US (occurrence: US)
  Receive Date: 20220913
  Receipt Date: 20221010
  Transmission Date: 20230113
  Serious: No
  Sender: FDA-Public Use
  Company Number: US-ORGANON-O2207USA002330

PATIENT
  Age: 23 Year
  Sex: Female
  Weight: 71.202 kg

DRUGS (2)
  1. NEXPLANON [Suspect]
     Active Substance: ETONOGESTREL
     Indication: Contraception
     Dosage: 1 IMPLANT OF 68 MG IN LEFT UPPER ARM
     Route: 059
     Dates: start: 20210715, end: 20220722
  2. NEXPLANON [Suspect]
     Active Substance: ETONOGESTREL
     Indication: Abnormal uterine bleeding

REACTIONS (3)
  - Heavy menstrual bleeding [Recovered/Resolved]
  - Device breakage [Recovered/Resolved]
  - Product use in unapproved indication [Unknown]

NARRATIVE: CASE EVENT DATE: 20210715
